FAERS Safety Report 6150867-4 (Version None)
Quarter: 2009Q2

REPORT INFORMATION
  Report Type: 
  Country: None (occurrence: None)
  Receive Date: 20090408
  Receipt Date: 20090326
  Transmission Date: 20091009
  Serious: Yes (Other)
  Sender: FDA-Public Use
  Company Number: 2009S1000113

PATIENT
  Sex: Female

DRUGS (1)
  1. CUBICIN [Suspect]
     Indication: PNEUMONIA STAPHYLOCOCCAL
     Dosage: 325 MG;Q24H;

REACTIONS (3)
  - CARDIOGENIC SHOCK [None]
  - EOSINOPHIL COUNT INCREASED [None]
  - RASH GENERALISED [None]
